FAERS Safety Report 13817727 (Version 4)
Quarter: 2017Q3

REPORT INFORMATION
  Report Type: Spontaneous
  Country: US (occurrence: US)
  Receive Date: 20170731
  Receipt Date: 20170907
  Transmission Date: 20171127
  Serious: Yes (Death, Hospitalization)
  Sender: FDA-Public Use
  Company Number: US-ACTELION-A-NJ2017-157378

PATIENT
  Age: 84 Year
  Sex: Male
  Weight: 54.42 kg

DRUGS (5)
  1. OPSUMIT [Suspect]
     Active Substance: MACITENTAN
     Indication: PULMONARY ARTERIAL HYPERTENSION
     Dosage: 10 MG, QD
     Route: 048
     Dates: end: 201707
  2. UPTRAVI [Suspect]
     Active Substance: SELEXIPAG
     Dosage: 200 MCG, BID
     Route: 048
  3. UPTRAVI [Suspect]
     Active Substance: SELEXIPAG
     Indication: PULMONARY ARTERIAL HYPERTENSION
     Dosage: 1600 MCG, BID
     Route: 048
  4. SILDENAFIL. [Concomitant]
     Active Substance: SILDENAFIL
  5. UPTRAVI [Suspect]
     Active Substance: SELEXIPAG
     Dosage: 600 MCG, BID
     Route: 048
     Dates: end: 20170820

REACTIONS (7)
  - Fluid retention [Unknown]
  - Pulmonary oedema [Unknown]
  - Pneumonia aspiration [Unknown]
  - Dyspnoea [Unknown]
  - Cardiac failure [Unknown]
  - Hypotension [Unknown]
  - Respiratory failure [Fatal]

NARRATIVE: CASE EVENT DATE: 20170820
